FAERS Safety Report 5127811-1 (Version None)
Quarter: 2006Q4

REPORT INFORMATION
  Report Type: 
  Country: None (occurrence: None)
  Receive Date: 20061016
  Receipt Date: 20061010
  Transmission Date: 20070319
  Serious: Yes (Other)
  Sender: FDA-Public Use
  Company Number: GB-BRISTOL-MYERS SQUIBB COMPANY-13538996

PATIENT
  Sex: Male

DRUGS (8)
  1. AMIKIN [Suspect]
     Indication: PULMONARY TUBERCULOSIS
  2. RIFAMPICIN [Concomitant]
  3. PROTHIONAMIDE [Concomitant]
  4. CIPROFLOXACIN [Concomitant]
  5. METOCLOPRAMIDE [Concomitant]
  6. ACETAMINOPHEN W/ CODEINE [Concomitant]
  7. CYCLOSERINE [Concomitant]
  8. PYRIDOXINE HCL [Concomitant]

REACTIONS (1)
  - DEAFNESS [None]
